FAERS Safety Report 20400098 (Version 2)
Quarter: 2022Q1

REPORT INFORMATION
  Report Type: Spontaneous
  Country: US (occurrence: US)
  Receive Date: 20220131
  Receipt Date: 20220201
  Transmission Date: 20220423
  Serious: No
  Sender: FDA-Public Use
  Company Number: US-ABBVIE-21K-163-3927428-00

PATIENT
  Age: 57 Year
  Sex: Female

DRUGS (2)
  1. HUMIRA [Suspect]
     Active Substance: ADALIMUMAB
     Indication: Product used for unknown indication
     Route: 058
     Dates: start: 201811, end: 201909
  2. METHOTREXATE [Concomitant]
     Active Substance: METHOTREXATE
     Indication: Product used for unknown indication

REACTIONS (12)
  - Drug ineffective [Not Recovered/Not Resolved]
  - Musculoskeletal stiffness [Unknown]
  - Arthralgia [Unknown]
  - Joint swelling [Unknown]
  - Red blood cell sedimentation rate abnormal [Unknown]
  - Skin erosion [Unknown]
  - Condition aggravated [Unknown]
  - Crohn^s disease [Recovering/Resolving]
  - Red blood cell sedimentation rate increased [Recovered/Resolved]
  - Laboratory test abnormal [Recovered/Resolved]
  - Red blood cell sedimentation rate increased [Recovering/Resolving]
  - Laboratory test abnormal [Recovering/Resolving]

NARRATIVE: CASE EVENT DATE: 20190401
